FAERS Safety Report 8390200-0 (Version None)
Quarter: 2012Q2

REPORT INFORMATION
  Report Type: 
  Country: None (occurrence: None)
  Receive Date: 20120522
  Receipt Date: 20120510
  Transmission Date: 20120825
  Serious: Yes (Hospitalization)
  Sender: FDA-Public Use
  Company Number: 2012SP017374

PATIENT
  Age: 69 Year
  Sex: Female
  Weight: 47 kg

DRUGS (9)
  1. DOGMATYL [Concomitant]
  2. PEGINTERFERON ALFA-2B [Suspect]
     Indication: HEPATITIS C
     Dosage: 80 MCG;QW;SC
     Route: 058
     Dates: start: 20120117, end: 20120201
  3. PRIMPERAN TAB [Concomitant]
  4. ALLOPURINOL [Concomitant]
  5. LACTEC [Concomitant]
  6. REBETOL [Suspect]
     Indication: HEPATITIS C
     Dosage: 600 MG;QD;PO ; 200 MG;QD;PO
     Route: 048
     Dates: start: 20120117, end: 20120126
  7. REBETOL [Suspect]
     Indication: HEPATITIS C
     Dosage: 600 MG;QD;PO ; 200 MG;QD;PO
     Route: 048
     Dates: start: 20120127, end: 20120205
  8. TELAVIC (ANTIVIRALS NOS) [Suspect]
     Indication: HEPATITIS C
     Dosage: 1500 MG;QD;PO
     Route: 048
     Dates: start: 20120117, end: 20120205
  9. URSO 250 [Concomitant]

REACTIONS (3)
  - RENAL TUBULAR NECROSIS [None]
  - ANAEMIA [None]
  - BLOOD URIC ACID INCREASED [None]
